FAERS Safety Report 8989306 (Version 1)
Quarter: 2012Q4

REPORT INFORMATION
  Report Type: 
  Country: IL (occurrence: IL)
  Receive Date: 20121228
  Receipt Date: 20121228
  Transmission Date: 20130627
  Serious: Yes (Death, Other)
  Sender: FDA-Public Use
  Company Number: IL-MPIJNJ-2012-05137

PATIENT

DRUGS (3)
  1. VELCADE [Suspect]
     Indication: T-CELL LYMPHOMA
     Route: 042
  2. MITOXANTRONE [Concomitant]
  3. ETOPOSIDE [Concomitant]

REACTIONS (2)
  - Tumour lysis syndrome [Fatal]
  - Disease progression [Fatal]
